FAERS Safety Report 8198852-5 (Version None)
Quarter: 2012Q1

REPORT INFORMATION
  Report Type: 
  Country: None (occurrence: None)
  Receive Date: 20120309
  Receipt Date: 20120214
  Transmission Date: 20120608
  Serious: Yes (Hospitalization)
  Sender: FDA-Public Use
  Company Number: US-AMGEN-USASP2012003990

PATIENT
  Age: 72 Year
  Sex: Female
  Weight: 71.202 kg

DRUGS (2)
  1. PROLIA [Suspect]
     Indication: COMPRESSION FRACTURE
  2. PROLIA [Suspect]
     Indication: OSTEOPOROSIS POSTMENOPAUSAL
     Dosage: 60 MG, ONE TIME DOSE
     Route: 058
     Dates: start: 20120111, end: 20120111

REACTIONS (2)
  - BACK PAIN [None]
  - OVARIAN DISORDER [None]
